FAERS Safety Report 5676415-0 (Version None)
Quarter: 2008Q1

REPORT INFORMATION
  Report Type: 
  Country: None (occurrence: None)
  Receive Date: 20080321
  Receipt Date: 20080311
  Transmission Date: 20080703
  Serious: Yes (Other)
  Sender: FDA-Public Use
  Company Number: US-PFIZER INC-2008024016

PATIENT
  Sex: Female
  Weight: 77 kg

DRUGS (9)
  1. LYRICA [Suspect]
     Indication: FIBROMYALGIA
  2. METHADON HCL TAB [Concomitant]
  3. ST. JOHN'S WORT [Concomitant]
  4. VITAMIN B [Concomitant]
  5. COD-LIVER OIL [Concomitant]
  6. ASPIRIN [Concomitant]
  7. VITAMIN E [Concomitant]
  8. VITAMIN D [Concomitant]
  9. CHONDROITIN [Concomitant]

REACTIONS (1)
  - MEMORY IMPAIRMENT [None]
